FAERS Safety Report 4333477-0 (Version None)
Quarter: 2004Q2

REPORT INFORMATION
  Report Type: 
  Country: None (occurrence: None)
  Receive Date: 20040401
  Receipt Date: 20040316
  Transmission Date: 20050107
  Serious: Yes (Hospitalization)
  Sender: FDA-Public Use
  Company Number: 7672

PATIENT
  Age: 37 Year
  Sex: Female

DRUGS (8)
  1. METHOTREXATE [Suspect]
     Indication: RHEUMATOID ARTHRITIS
     Dosage: 0.8 ML WEEKLY SC
     Route: 058
     Dates: start: 20000801
  2. REMICADE [Suspect]
     Indication: RHEUMATOID ARTHRITIS
     Dosage: 300 MG OTH IV
     Route: 042
     Dates: start: 20011127, end: 20031007
  3. MULTI-VITAMINS [Concomitant]
  4. PREDNISONE [Concomitant]
  5. FOLATE SODIUM [Concomitant]
  6. AMBIEN [Concomitant]
  7. CALTRATE 600 + VITAMIN D [Concomitant]
  8. ACIPHEX [Concomitant]

REACTIONS (5)
  - CHEST PAIN [None]
  - LUPUS-LIKE SYNDROME [None]
  - PERICARDITIS [None]
  - PLEURITIC PAIN [None]
  - TACHYPNOEA [None]
